FAERS Safety Report 8901112 (Version 1)
Quarter: 2012Q4

REPORT INFORMATION
  Report Type: 
  Country: DE (occurrence: DE)
  Receive Date: 20121108
  Receipt Date: 20121108
  Transmission Date: 20130627
  Serious: Yes (Death)
  Sender: FDA-Public Use
  Company Number: DE-B.I. PHARMACEUTICALS,INC./RIDGEFIELD-2012-DE-02645DE

PATIENT
  Age: 96 Year
  Sex: Female

DRUGS (5)
  1. PRADAXA [Suspect]
     Indication: ATRIAL FIBRILLATION
     Dosage: 220 mg
     Dates: end: 20120925
  2. RAMIPRIL 5MG [Concomitant]
     Indication: HYPERTENSION
     Dosage: 2.5 mg
     Route: 048
     Dates: end: 20120925
  3. AMLODIPIN [Concomitant]
     Indication: HYPERTENSION
     Dosage: 5 mg
     Route: 048
     Dates: end: 20120925
  4. TOREM [Concomitant]
     Indication: OEDEMA
     Dosage: 10 mg
     Route: 048
     Dates: end: 20120925
  5. IBUPROFEN 600MG [Concomitant]
     Indication: PAIN
     Dosage: 300 mg
     Route: 048
     Dates: end: 20120925

REACTIONS (3)
  - Coagulopathy [Fatal]
  - Diarrhoea haemorrhagic [Fatal]
  - Haematuria [Fatal]
